FAERS Safety Report 20310074 (Version 4)
Quarter: 2022Q1

REPORT INFORMATION
  Report Type: Report from Study
  Country: US (occurrence: US)
  Receive Date: 20220107
  Receipt Date: 20220225
  Transmission Date: 20220423
  Serious: No
  Sender: FDA-Public Use
  Company Number: US-NOVARTISPH-NVSC2022US002875

PATIENT
  Sex: Female

DRUGS (1)
  1. COSENTYX [Suspect]
     Active Substance: SECUKINUMAB
     Indication: Product used for unknown indication
     Dosage: 300 MG, QMO
     Route: 058

REACTIONS (5)
  - Weight decreased [Unknown]
  - Psoriasis [Unknown]
  - Arthritis [Unknown]
  - Macule [Unknown]
  - Swelling [Unknown]
